FAERS Safety Report 9438834 (Version 1)
Quarter: 2013Q3

REPORT INFORMATION
  Report Type: Spontaneous
  Country: US (occurrence: US)
  Receive Date: 20130802
  Receipt Date: 20130802
  Transmission Date: 20140515
  Serious: Yes (Hospitalization)
  Sender: FDA-Public Use
  Company Number: US-ELI_LILLY_AND_COMPANY-US201307008625

PATIENT
  Sex: Female

DRUGS (10)
  1. HUMALOG LISPRO [Suspect]
     Indication: TYPE 2 DIABETES MELLITUS
     Dosage: UNK UNK, PRN
  2. LACTULOSE [Concomitant]
     Dosage: UNK, OTHER
  3. GLIPIZIDE [Concomitant]
  4. METFORMIN [Concomitant]
     Dosage: 500 MG, BID
  5. PROTONIX [Concomitant]
     Dosage: 40 MG, QD
  6. TRIMETHOPRIM [Concomitant]
  7. VITAMIN D [Concomitant]
     Dosage: 1000 MG, QD
  8. MAGNESIUM OXIDE [Concomitant]
     Dosage: 400 MG, QD
  9. VITAMIN B COMPLEX [Concomitant]
     Dosage: UNK, QD
  10. ZINC [Concomitant]
     Dosage: 50 MG, BID

REACTIONS (2)
  - Confusional state [Unknown]
  - Ammonia increased [Unknown]
